FAERS Safety Report 6174492-4 (Version None)
Quarter: 2009Q2

REPORT INFORMATION
  Report Type: 
  Country: None (occurrence: None)
  Receive Date: 20090430
  Receipt Date: 20080626
  Transmission Date: 20091009
  Serious: No
  Sender: FDA-Public Use
  Company Number: US-ASTRAZENECA-2008UW12836

PATIENT
  Age: 68 Year
  Sex: Female
  Weight: 54.4 kg

DRUGS (8)
  1. NEXIUM [Suspect]
     Indication: GASTROOESOPHAGEAL REFLUX DISEASE
     Route: 048
     Dates: start: 20070101
  2. NEXIUM [Suspect]
     Route: 048
  3. NEXIUM [Suspect]
     Route: 048
  4. EYE DROPS [Concomitant]
  5. LIBRAX [Concomitant]
  6. PEPCID [Concomitant]
  7. FIBERCON [Concomitant]
  8. GAS-EX [Concomitant]

REACTIONS (4)
  - CHEST PAIN [None]
  - DYSGEUSIA [None]
  - MUSCULOSKELETAL CHEST PAIN [None]
  - THROAT IRRITATION [None]
